FAERS Safety Report 20525444 (Version 1)
Quarter: 2022Q1

REPORT INFORMATION
  Report Type: Spontaneous
  Country: US (occurrence: None)
  Receive Date: 20220225
  Receipt Date: 20220225
  Transmission Date: 20220423
  Serious: No
  Sender: FDA-Public Use
  Company Number: None

PATIENT
  Age: 78 Year
  Sex: Male

DRUGS (1)
  1. PEGASYS [Suspect]
     Active Substance: PEGINTERFERON ALFA-2A
     Indication: Myelofibrosis
     Dosage: OTHER FREQUENCY : OTHER;?
     Route: 058
     Dates: start: 202109

REACTIONS (2)
  - Poor quality product administered [None]
  - Product storage error [None]

NARRATIVE: CASE EVENT DATE: 20220225
